FAERS Safety Report 6226448-0 (Version None)
Quarter: 2009Q2

REPORT INFORMATION
  Report Type: 
  Country: None (occurrence: None)
  Receive Date: 20090612
  Receipt Date: 20090515
  Transmission Date: 20091009
  Serious: No
  Sender: FDA-Public Use
  Company Number: US-ABBOTT-09P-163-0573852-00

PATIENT
  Sex: Female

DRUGS (1)
  1. HUMIRA [Suspect]
     Indication: CROHN'S DISEASE
     Route: 058
     Dates: start: 20080808

REACTIONS (4)
  - ALOPECIA [None]
  - AMENORRHOEA [None]
  - HORMONE LEVEL ABNORMAL [None]
  - NAIL AVULSION [None]
